FAERS Safety Report 24259956 (Version 3)
Quarter: 2024Q4

REPORT INFORMATION
  Report Type: Spontaneous
  Country: US (occurrence: US)
  Receive Date: 20240828
  Receipt Date: 20241001
  Transmission Date: 20250114
  Serious: Yes (Hospitalization, Other)
  Sender: MALLINCKRODT
  Company Number: US-MALLINCKRODT-MNK202405256

PATIENT
  Age: 9 Month
  Sex: Male
  Weight: 7 kg

DRUGS (8)
  1. CORTICOTROPIN [Suspect]
     Active Substance: CORTICOTROPIN
     Indication: Infantile spasms
     Route: 030
     Dates: start: 20240806, end: 20240819
  2. CORTICOTROPIN [Suspect]
     Active Substance: CORTICOTROPIN
     Indication: Epilepsy
     Route: 030
     Dates: start: 20240820, end: 2024
  3. TYLENOL [Concomitant]
     Active Substance: ACETAMINOPHEN
     Dosage: UNKNOWN
  4. FAMOTIDINE [Concomitant]
     Active Substance: FAMOTIDINE
     Dosage: UNKNOWN
  5. SENNA LEAF [Concomitant]
     Active Substance: SENNA LEAF
     Dosage: UNKNOWN
  6. LACTULOSE [Concomitant]
     Active Substance: LACTULOSE
     Dosage: UNKNOWN
  7. PHENOBARBITAL [Concomitant]
     Active Substance: PHENOBARBITAL
     Dosage: UNKNOWN
  8. MOXATAG [Concomitant]
     Active Substance: AMOXICILLIN
     Dosage: UNKNOWN

REACTIONS (5)
  - Heart rate abnormal [Not Recovered/Not Resolved]
  - Immunodeficiency [Not Recovered/Not Resolved]
  - Blood glucose increased [Recovering/Resolving]
  - Rhinovirus infection [Not Recovered/Not Resolved]
  - Injection site bruising [Unknown]

NARRATIVE: CASE EVENT DATE: 20240101
